FAERS Safety Report 19729776 (Version 3)
Quarter: 2022Q1

REPORT INFORMATION
  Report Type: Report from Study
  Country: NL (occurrence: None)
  Receive Date: 20210820
  Receipt Date: 20220208
  Transmission Date: 20220424
  Serious: Yes (Hospitalization)
  Sender: FDA-Public Use
  Company Number: NL-ROCHE-2892244

PATIENT
  Age: 77 Year
  Sex: Male

DRUGS (3)
  1. VEMURAFENIB [Suspect]
     Active Substance: VEMURAFENIB
     Indication: Neoplasm
     Dosage: MOST RECENT DOSE ON: 14/AUG/2021?MOST RECENT DOSE ON: 01/FEB/2022
     Route: 048
     Dates: start: 20210312
  2. COBIMETINIB [Suspect]
     Active Substance: COBIMETINIB
     Indication: Neoplasm
     Dosage: MOST RECENT DOSE ON: 14/AUG/2021?MOST RECENT DOSE ON: 01/FEB/2022
     Route: 065
     Dates: start: 20210312
  3. FLUCONAZOLE [Concomitant]
     Active Substance: FLUCONAZOLE
     Dates: end: 20210715

REACTIONS (1)
  - Urosepsis [Recovered/Resolved]

NARRATIVE: CASE EVENT DATE: 20210815
